FAERS Safety Report 12487117 (Version 1)
Quarter: 2016Q2

REPORT INFORMATION
  Report Type: Spontaneous
  Country: US (occurrence: None)
  Receive Date: 20160621
  Receipt Date: 20160621
  Transmission Date: 20160815
  Serious: Yes (Disabling, Other)
  Sender: FDA-Public Use
  Company Number: None

PATIENT
  Age: 53 Year
  Sex: Female
  Weight: 107.5 kg

DRUGS (6)
  1. HYDROCHLORORHIAZIDE [Concomitant]
  2. PROVENTIL HFA [Suspect]
     Active Substance: ALBUTEROL SULFATE
  3. VITAMIN B12 [Concomitant]
     Active Substance: CYANOCOBALAMIN
  4. LOSARTAN-HCTZ 50-12.5MG TAB NORTHSTAR [Suspect]
     Active Substance: HYDROCHLOROTHIAZIDE\LOSARTAN POTASSIUM
     Indication: HYPERTENSION
     Route: 048
  5. SYMBICORT [Concomitant]
     Active Substance: BUDESONIDE\FORMOTEROL FUMARATE DIHYDRATE
  6. VITAMIN D3 [Concomitant]
     Active Substance: CHOLECALCIFEROL

REACTIONS (11)
  - Palpitations [None]
  - Vision blurred [None]
  - Dysuria [None]
  - Malaise [None]
  - Movement disorder [None]
  - Hypoaesthesia [None]
  - Dizziness [None]
  - Arthropathy [None]
  - Muscle spasms [None]
  - Pain in extremity [None]
  - Gait disturbance [None]

NARRATIVE: CASE EVENT DATE: 20160510
